FAERS Safety Report 5176874-6 (Version None)
Quarter: 2006Q4

REPORT INFORMATION
  Report Type: 
  Country: None (occurrence: None)
  Receive Date: 20061212
  Receipt Date: 20061212
  Transmission Date: 20070319
  Serious: Yes (Other)
  Sender: FDA-Public Use
  Company Number: None

PATIENT
  Age: 64 Year
  Sex: Male
  Weight: 68.9467 kg

DRUGS (1)
  1. LEUKINE [Suspect]
     Indication: LUNG NEOPLASM MALIGNANT
     Dosage: 500MCG Q DAILY SQ
     Route: 058
     Dates: start: 20060914

REACTIONS (4)
  - BLOOD PRESSURE DECREASED [None]
  - DIZZINESS [None]
  - HYPERHIDROSIS [None]
  - NAUSEA [None]
